FAERS Safety Report 19405542 (Version 1)
Quarter: 2021Q2

REPORT INFORMATION
  Report Type: Spontaneous
  Country: US (occurrence: US)
  Receive Date: 20210611
  Receipt Date: 20210611
  Transmission Date: 20210717
  Serious: No
  Sender: FDA-Public Use
  Company Number: US-NANJING KING-FRIEND BIOCHEMICAL PHARMACEUTICAL CO. LTD.-2021NKF00035

PATIENT
  Age: 62 Year
  Sex: Female
  Weight: 71 kg

DRUGS (5)
  1. HEPARIN SODIUM. [Suspect]
     Active Substance: HEPARIN SODIUM
     Dosage: 10000 U OF ORIGINAL LOT LEFT IN CPB PUMP PRIME
     Route: 042
     Dates: start: 20210315, end: 20210315
  2. HEPARIN SODIUM. [Suspect]
     Active Substance: HEPARIN SODIUM
     Indication: AORTIC VALVE REPLACEMENT
     Dosage: 5000 U BOLUS
     Route: 042
     Dates: start: 20210315, end: 20210315
  3. HEPARIN SODIUM. [Suspect]
     Active Substance: HEPARIN SODIUM
     Dosage: 10000 U BOLUS
     Route: 042
     Dates: start: 20210315, end: 20210315
  4. HEPARIN SODIUM. [Suspect]
     Active Substance: HEPARIN SODIUM
     Dosage: ^55000 U TOTAL GIVEN^
     Route: 042
     Dates: start: 20210315, end: 20210315
  5. HEPARIN SODIUM. [Suspect]
     Active Substance: HEPARIN SODIUM
     Indication: CARDIOPULMONARY BYPASS
     Dosage: 25000 U BOLUS
     Route: 042
     Dates: start: 20210315, end: 20210315

REACTIONS (1)
  - Therapeutic product effect incomplete [Recovered/Resolved]

NARRATIVE: CASE EVENT DATE: 20210315
